FAERS Safety Report 8615110 (Version 3)
Quarter: 2012Q4

REPORT INFORMATION
  Report Type: 
  Country: US (occurrence: US)
  Receive Date: 20120614
  Receipt Date: 20120831
  Transmission Date: 20130627
  Serious: Yes (Other)
  Sender: FDA-Public Use
  Company Number: US-BAYER-2012-058644

PATIENT
  Age: 70 Year
  Sex: Male
  Weight: 75 kg

DRUGS (18)
  1. TRASYLOL [Suspect]
     Indication: CORONARY ARTERY BYPASS
     Dosage: 200 ml pump prime
     Route: 042
     Dates: start: 20000913, end: 20000913
  2. CEFUROXIME [Concomitant]
     Dosage: UNK
     Dates: start: 20000913, end: 20000913
  3. FENTANYL [Concomitant]
     Dosage: UNK
     Dates: start: 20000913, end: 20000913
  4. VERSED [Concomitant]
     Dosage: UNK
     Dates: start: 20000913, end: 20000913
  5. SOLUMEDROL [Concomitant]
     Dosage: UNK
     Dates: start: 20000913, end: 20000913
  6. PROTAMINE [Concomitant]
     Dosage: UNK
     Dates: start: 20000913, end: 20000913
  7. HEPARIN [Concomitant]
     Dosage: UNK
     Dates: start: 20000913, end: 20000913
  8. ZINACEF [Concomitant]
     Dosage: UNK
     Dates: start: 20000913, end: 20000913
  9. VANCOMYCIN [Concomitant]
     Dosage: 1 g, UNK
     Dates: start: 20000913, end: 20000913
  10. MANNITOL [Concomitant]
     Dosage: 25 g, UNK
     Dates: start: 20000913, end: 20000913
  11. NORVASC [Concomitant]
     Dosage: 10 mg, QD
     Route: 048
  12. IMDUR [Concomitant]
     Dosage: 180 mg, UNK
  13. ACETYLSALICYLIC ACID (} 100 MG) [Concomitant]
     Dosage: UNK UNK, QD
  14. LASIX [Concomitant]
  15. CORGARD [Concomitant]
     Dosage: 20 mg, QD
  16. NITROGLYCERINE [Concomitant]
  17. STOMACH-60 [Concomitant]
  18. DOPAMINE [Concomitant]

REACTIONS (7)
  - Renal failure acute [None]
  - Ventricular tachycardia [None]
  - Ventricular fibrillation [None]
  - Myocardial ischaemia [None]
  - Peritonitis [None]
  - Sepsis [None]
  - Atrial flutter [None]
